FAERS Safety Report 18894179 (Version 4)
Quarter: 2025Q1

REPORT INFORMATION
  Report Type: Spontaneous
  Country: AT (occurrence: AT)
  Receive Date: 20210215
  Receipt Date: 20250328
  Transmission Date: 20250408
  Serious: Yes (Hospitalization, Other)
  Sender: SAMSUNG BIOEPIS
  Company Number: AT-EMA-DD-20200930-SAHARAN_H-110555

PATIENT
  Age: 66 Year
  Sex: Female
  Weight: 80.4 kg

DRUGS (76)
  1. TRASTUZUMAB [Suspect]
     Active Substance: TRASTUZUMAB
     Indication: Breast cancer metastatic
     Route: 042
     Dates: start: 20170224, end: 20170224
  2. TRASTUZUMAB [Suspect]
     Active Substance: TRASTUZUMAB
     Route: 042
     Dates: start: 20170603, end: 20170609
  3. TRASTUZUMAB [Suspect]
     Active Substance: TRASTUZUMAB
     Route: 042
     Dates: start: 20170410, end: 20170427
  4. TRASTUZUMAB [Suspect]
     Active Substance: TRASTUZUMAB
     Route: 042
     Dates: start: 20170810, end: 20190213
  5. TRASTUZUMAB [Suspect]
     Active Substance: TRASTUZUMAB
     Route: 042
     Dates: start: 20210317, end: 20210428
  6. TRASTUZUMAB [Suspect]
     Active Substance: TRASTUZUMAB
     Route: 042
     Dates: start: 20170519, end: 20170519
  7. TRASTUZUMAB [Suspect]
     Active Substance: TRASTUZUMAB
     Route: 042
     Dates: start: 20170720, end: 20170720
  8. TRASTUZUMAB [Suspect]
     Active Substance: TRASTUZUMAB
     Route: 042
     Dates: start: 20200422, end: 20200615
  9. TRASTUZUMAB [Suspect]
     Active Substance: TRASTUZUMAB
     Route: 042
     Dates: start: 20201230, end: 20210210
  10. TRASTUZUMAB [Suspect]
     Active Substance: TRASTUZUMAB
     Route: 042
     Dates: start: 20170609, end: 20170630
  11. TRASTUZUMAB [Suspect]
     Active Substance: TRASTUZUMAB
     Route: 042
     Dates: start: 20170810, end: 20190213
  12. TRASTUZUMAB [Suspect]
     Active Substance: TRASTUZUMAB
     Route: 042
     Dates: start: 20200422, end: 20200615
  13. TRASTUZUMAB [Suspect]
     Active Substance: TRASTUZUMAB
     Route: 042
     Dates: start: 20201230, end: 20210210
  14. XELODA [Suspect]
     Active Substance: CAPECITABINE
     Indication: Breast cancer metastatic
     Dosage: DAILY FOR 2 WEEKS THEN PAUSE FOR 1 WEEK;
     Dates: start: 20201230, end: 20210203
  15. XELODA [Suspect]
     Active Substance: CAPECITABINE
     Indication: Breast cancer metastatic
     Dosage: 3500 MILLIGRAM, QD;
     Dates: start: 20210210, end: 20210224
  16. XELODA [Suspect]
     Active Substance: CAPECITABINE
     Dosage: 3500 MILLIGRAM, QD;
     Dates: start: 20191002, end: 20200107
  17. XELODA [Suspect]
     Active Substance: CAPECITABINE
     Dosage: 3000 MILLIGRAM, QD;
     Dates: start: 20200108
  18. TYKERB [Suspect]
     Active Substance: LAPATINIB DITOSYLATE
     Indication: Breast cancer metastatic
     Dosage: 1000 MILLIGRAM, QD
     Dates: start: 20200108, end: 20200421
  19. TYKERB [Suspect]
     Active Substance: LAPATINIB DITOSYLATE
     Indication: Breast cancer metastatic
     Dosage: 1250 MILLIGRAM, QD
     Dates: start: 20191002, end: 20200107
  20. TUCATINIB [Suspect]
     Active Substance: TUCATINIB
     Indication: Breast cancer metastatic
     Dates: end: 20210210
  21. TAXOTERE [Suspect]
     Active Substance: DOCETAXEL
     Indication: Breast cancer metastatic
     Dates: start: 20170519, end: 20170519
  22. TAXOTERE [Suspect]
     Active Substance: DOCETAXEL
     Indication: Breast cancer metastatic
     Dosage: 190 MILLIGRAM, Q3W;
     Dates: start: 20170224
  23. TAXOTERE [Suspect]
     Active Substance: DOCETAXEL
     Dosage: 180 MILLIGRAM, Q3W;
     Dates: start: 20170609, end: 20170630
  24. TAXOTERE [Suspect]
     Active Substance: DOCETAXEL
     Dosage: 134.25 MILLIGRAM, Q3W;
     Dates: start: 20210317, end: 20210428
  25. TAXOTERE [Suspect]
     Active Substance: DOCETAXEL
     Dates: start: 20170410, end: 20170427
  26. PERJETA [Suspect]
     Active Substance: PERTUZUMAB
     Indication: Breast cancer metastatic
     Dosage: 840 MILLIGRAM, QD;
     Dates: start: 20170224
  27. PERJETA [Suspect]
     Active Substance: PERTUZUMAB
     Dosage: 840 MILLIGRAM, QD;
     Dates: start: 20200422, end: 20200615
  28. PERJETA [Suspect]
     Active Substance: PERTUZUMAB
     Dosage: 840 MILLIGRAM, QD;
     Dates: start: 20210317, end: 20210428
  29. TUCATINIB [Suspect]
     Active Substance: TUCATINIB
     Indication: Breast cancer metastatic
     Dates: end: 20210210
  30. NAVELBINE [Suspect]
     Active Substance: VINORELBINE TARTRATE
     Indication: Breast cancer metastatic
     Dosage: 45 MILLIGRAM, Q3W;
     Dates: end: 20200722
  31. NAVELBINE [Suspect]
     Active Substance: VINORELBINE TARTRATE
     Indication: Breast cancer metastatic
  32. KADCYLA [Suspect]
     Active Substance: ADO-TRASTUZUMAB EMTANSINE
     Indication: Breast cancer metastatic
     Dosage: 270 MILLIGRAM, Q3W;
     Dates: start: 20190306, end: 20190909
  33. KADCYLA [Suspect]
     Active Substance: ADO-TRASTUZUMAB EMTANSINE
     Indication: Breast cancer metastatic
  34. HERCEPTIN [Suspect]
     Active Substance: TRASTUZUMAB
     Indication: Breast cancer metastatic
     Dosage: 462 MILLIGRAM, Q3W;
     Dates: start: 20170810, end: 20190213
  35. HERCEPTIN [Suspect]
     Active Substance: TRASTUZUMAB
     Indication: Breast cancer metastatic
     Dosage: 414 MILLIGRAM, Q3W
     Dates: start: 20170609, end: 20170630
  36. HERCEPTIN [Suspect]
     Active Substance: TRASTUZUMAB
     Dosage: 468 MILLIGRAM, QD
     Dates: start: 20170720, end: 20170720
  37. HERCEPTIN [Suspect]
     Active Substance: TRASTUZUMAB
     Dates: start: 20170410, end: 20170427
  38. HERCEPTIN [Suspect]
     Active Substance: TRASTUZUMAB
     Dosage: 560 MILLIGRAM, Q3W
     Dates: start: 20201230, end: 20210210
  39. HERCEPTIN [Suspect]
     Active Substance: TRASTUZUMAB
     Dosage: 408 MILLIGRAM, Q3W
     Dates: start: 20210317, end: 20210428
  40. HERCEPTIN [Suspect]
     Active Substance: TRASTUZUMAB
     Dosage: 540 MILLIGRAM, Q3W
     Dates: start: 20200422, end: 20200615
  41. HERCEPTIN [Suspect]
     Active Substance: TRASTUZUMAB
     Dosage: 432 MILLIGRAM, QD
     Dates: start: 20170519, end: 20170519
  42. HERCEPTIN [Suspect]
     Active Substance: TRASTUZUMAB
     Dosage: 624 MILLIGRAM, QD
     Dates: start: 20170224, end: 20170224
  43. FASLODEX [Suspect]
     Active Substance: FULVESTRANT
     Indication: Breast cancer metastatic
     Dosage: 500 MILLIGRAM, QMONTH
     Dates: start: 20171116, end: 20191001
  44. ENHERTU [Suspect]
     Active Substance: FAM-TRASTUZUMAB DERUXTECAN-NXKI
     Indication: Breast cancer metastatic
     Dates: end: 20201015
  45. DOXIL [Suspect]
     Active Substance: DOXORUBICIN HYDROCHLORIDE
     Indication: Breast cancer metastatic
     Dosage: 104.4 MILLIGRAM, QD
     Dates: end: 20210608
  46. DOXIL [Suspect]
     Active Substance: DOXORUBICIN HYDROCHLORIDE
     Indication: Breast cancer metastatic
  47. DENOSUMAB [Suspect]
     Active Substance: DENOSUMAB
     Indication: Breast cancer metastatic
     Dosage: 120 MILLIGRAM, Q4W
     Route: 040
     Dates: start: 20170202, end: 20210521
  48. DENOSUMAB [Suspect]
     Active Substance: DENOSUMAB
     Indication: Breast cancer metastatic
     Dosage: 120 MILLIGRAM, Q4W
     Route: 040
     Dates: start: 20201230, end: 20210210
  49. BLEOMYCIN [Suspect]
     Active Substance: BLEOMYCIN SULFATE
     Indication: Breast cancer metastatic
     Dosage: 26.85 MILLIGRAM, QD
     Dates: start: 20210105, end: 20210105
  50. BLEOMYCIN [Suspect]
     Active Substance: BLEOMYCIN SULFATE
     Indication: Breast cancer metastatic
     Dosage: 26.85 MILLIGRAM, QD
     Dates: end: 20200519
  51. CAPECITABINE [Suspect]
     Active Substance: CAPECITABINE
     Indication: Breast cancer
     Dosage: MOST RECENT DOSE PRIOR TO THE EVENT LYMPH NODE METASTATIS AXILLA AND PORT A CATH INFECTION: 08/JAN/2
     Route: 048
     Dates: start: 20191002, end: 20200107
  52. DOCETAXEL [Suspect]
     Active Substance: DOCETAXEL
     Indication: Breast cancer metastatic
     Dosage: MOST RECENT DOSE PRIOR TO THE EVENTS: 09/JUN/2017
     Route: 042
     Dates: start: 20170224, end: 20170317
  53. LAPATINIB [Suspect]
     Active Substance: LAPATINIB
     Indication: Breast cancer
     Dosage: MOST RECENT DOSE PRIOR TO THE EVENT LYMPH NODE METASTATIS AXILLA AND PORT A CATH INFECTION: 08/JAN/2
     Route: 048
     Dates: start: 20191002, end: 20200107
  54. PERTUZUMAB [Suspect]
     Active Substance: PERTUZUMAB
     Indication: Breast cancer metastatic
     Dosage: MOST RECENT DOSE PRIOR TO THE EVENT WORSENING OF BRAIN METASTASES: 17/MAR/2017 MOST RECENT DOSE PRIO
     Route: 042
     Dates: start: 20170224, end: 20170224
  55. ADO-TRASTUZUMAB EMTANSINE [Suspect]
     Active Substance: ADO-TRASTUZUMAB EMTANSINE
     Indication: Breast cancer metastatic
     Dosage: INFUSION, SOLUTION
     Route: 042
     Dates: start: 20190306, end: 20190909
  56. VINORELBINE [Suspect]
     Active Substance: VINORELBINE TARTRATE
     Indication: Breast cancer metastatic
     Route: 042
  57. FULVESTRANT [Suspect]
     Active Substance: FULVESTRANT
     Indication: Breast cancer
     Dosage: MOST RECENT DOSE PRIOR TO THE EVENT LYMPH NODE METASTATIS AXILLA AND PORT A CATH INFECTION: 16-NOV-2
     Route: 058
     Dates: start: 20171002, end: 20171115
  58. FULVESTRANT [Suspect]
     Active Substance: FULVESTRANT
     Dosage: MOST RECENT DOSE PRIOR TO THE EVENT LYMPH NODE METASTATIS AXILLA AND PORT A CATH INFECTION: 16-NOV-2
     Route: 030
     Dates: start: 20171002, end: 20171115
  59. CARBOXYMETHYLCELLULOSE SODIUM [Suspect]
     Active Substance: CARBOXYMETHYLCELLULOSE SODIUM
     Indication: Product used for unknown indication
     Dates: end: 20210413
  60. ACETAMINOPHEN [Concomitant]
     Active Substance: ACETAMINOPHEN
     Indication: Product used for unknown indication
  61. LOVENOX [Concomitant]
     Active Substance: ENOXAPARIN SODIUM
     Indication: Product used for unknown indication
     Route: 065
     Dates: start: 20170224, end: 20171130
  62. OLIVE OIL [Concomitant]
     Active Substance: OLIVE OIL
     Indication: Paronychia
     Route: 065
     Dates: start: 20191002, end: 20200512
  63. PREGABALIN [Concomitant]
     Active Substance: PREGABALIN
     Indication: Product used for unknown indication
     Route: 065
     Dates: start: 20190821, end: 20210616
  64. LEVOFLOXACIN [Concomitant]
     Active Substance: LEVOFLOXACIN
     Indication: Product used for unknown indication
     Route: 065
     Dates: end: 20200512
  65. TAZOBACTAM [Concomitant]
     Active Substance: TAZOBACTAM
     Indication: Streptococcal sepsis
     Route: 065
     Dates: end: 20200504
  66. XGEVA [Concomitant]
     Active Substance: DENOSUMAB
     Indication: Product used for unknown indication
     Route: 065
     Dates: start: 20170202, end: 20210521
  67. EMEND [Concomitant]
     Active Substance: APREPITANT
     Indication: Product used for unknown indication
     Route: 065
     Dates: end: 20200430
  68. MORPHINE [Concomitant]
     Active Substance: MORPHINE
     Indication: Dyspnoea
     Dates: end: 20210623
  69. VITAMIN C [Concomitant]
     Active Substance: ASCORBIC ACID
     Indication: Gastrointestinal disorder
     Dates: end: 20210614
  70. ALPRAZOLAM [Concomitant]
     Active Substance: ALPRAZOLAM
     Indication: Restlessness
     Dates: end: 20210615
  71. DROPERIDOL [Concomitant]
     Active Substance: DROPERIDOL
     Indication: Gastrointestinal disorder
     Dates: end: 20210617
  72. ZIEXTENZO [Concomitant]
     Active Substance: PEGFILGRASTIM-BMEZ
     Indication: Product used for unknown indication
     Dates: end: 20210610
  73. ZOFRAN [Concomitant]
     Active Substance: ONDANSETRON HYDROCHLORIDE
     Indication: Gastrointestinal disorder
     Dates: end: 20210616
  74. LORAZEPAM [Concomitant]
     Active Substance: LORAZEPAM
     Indication: Restlessness
     Dates: end: 20210623
  75. SODIUM CACODYLATE [Concomitant]
     Active Substance: SODIUM CACODYLATE
     Indication: Dyspnoea
     Dates: end: 20210616
  76. SODIUM CACODYLATE [Concomitant]
     Active Substance: SODIUM CACODYLATE
     Dates: start: 20210616, end: 20210623

REACTIONS (23)
  - Vascular device infection [Recovered/Resolved]
  - Metastases to lymph nodes [Not Recovered/Not Resolved]
  - Brain oedema [Not Recovered/Not Resolved]
  - Streptococcal sepsis [Recovered/Resolved]
  - Pseudomonal sepsis [Recovered/Resolved]
  - Sepsis [Recovered/Resolved]
  - Metastases to central nervous system [Not Recovered/Not Resolved]
  - Back pain [Recovered/Resolved]
  - Vomiting [Recovered/Resolved]
  - Nausea [Recovered/Resolved]
  - Pleural effusion [Recovered/Resolved]
  - Fatigue [Recovered/Resolved]
  - Paronychia [Recovered/Resolved]
  - Candida infection [Recovered/Resolved]
  - Eczema [Not Recovered/Not Resolved]
  - Skin fissures [Recovered/Resolved]
  - C-reactive protein increased [Not Recovered/Not Resolved]
  - Varicose vein [Not Recovered/Not Resolved]
  - Nail bed inflammation [Not Recovered/Not Resolved]
  - Restlessness [Not Recovered/Not Resolved]
  - Nasal mucosal disorder [Recovered/Resolved]
  - Product use issue [Unknown]
  - Off label use [Unknown]

NARRATIVE: CASE EVENT DATE: 20191101
